FAERS Safety Report 12661260 (Version 2)
Quarter: 2016Q3

REPORT INFORMATION
  Report Type: Spontaneous
  Country: US (occurrence: US)
  Receive Date: 20160817
  Receipt Date: 20160901
  Transmission Date: 20161109
  Serious: No
  Sender: FDA-Public Use
  Company Number: US-RELYPSA-RLY2016000821

PATIENT
  Age: 61 Year
  Sex: Female

DRUGS (4)
  1. VELTASSA [Suspect]
     Active Substance: PATIROMER
     Indication: HYPERKALAEMIA
     Dosage: 8.4 G, Q.O.D.
     Route: 048
     Dates: start: 20160519, end: 20160521
  2. FOLIC ACID. [Concomitant]
     Active Substance: FOLIC ACID
  3. IMURAN [Concomitant]
     Active Substance: AZATHIOPRINE
  4. PROTONIX                           /00661201/ [Concomitant]
     Active Substance: OMEPRAZOLE

REACTIONS (3)
  - Abdominal discomfort [Recovering/Resolving]
  - Diarrhoea [Recovered/Resolved]
  - Flatulence [Recovered/Resolved]

NARRATIVE: CASE EVENT DATE: 20160519
